FAERS Safety Report 21104862 (Version 2)
Quarter: 2022Q3

REPORT INFORMATION
  Report Type: Spontaneous
  Country: AT (occurrence: AT)
  Receive Date: 20220720
  Receipt Date: 20220729
  Transmission Date: 20221027
  Serious: No
  Sender: FDA-Public Use
  Company Number: AT-CELLTRION INC.-2022AT011500

PATIENT

DRUGS (1)
  1. INFLIXIMAB [Suspect]
     Active Substance: INFLIXIMAB
     Indication: Cogan^s syndrome
     Dosage: 5 MG/KG WEEK 0-2-4 THEN EVERY 8 WEEKS
     Dates: start: 20220711

REACTIONS (1)
  - Off label use [Unknown]
